FAERS Safety Report 11144913 (Version 1)
Quarter: 2015Q2

REPORT INFORMATION
  Report Type: Report from Study
  Country: US (occurrence: US)
  Receive Date: 20150528
  Receipt Date: 20150528
  Transmission Date: 20150821
  Serious: Yes (Hospitalization)
  Sender: FDA-Public Use
  Company Number: US-BIOGENIDEC-2015BI070042

PATIENT
  Sex: Female

DRUGS (1)
  1. TECFIDERA [Suspect]
     Active Substance: DIMETHYL FUMARATE
     Indication: MULTIPLE SCLEROSIS
     Dates: start: 20140905, end: 20141231

REACTIONS (6)
  - Diarrhoea [Recovered/Resolved]
  - Enterocolonic fistula [Not Recovered/Not Resolved]
  - Nausea [Recovered/Resolved]
  - Anal fistula [Not Recovered/Not Resolved]
  - Sepsis [Unknown]
  - Multiple sclerosis relapse [Unknown]
